FAERS Safety Report 15718385 (Version 1)
Quarter: 2018Q4

REPORT INFORMATION
  Report Type: Spontaneous
  Country: US (occurrence: US)
  Receive Date: 20181213
  Receipt Date: 20181213
  Transmission Date: 20190205
  Serious: Yes (Other)
  Sender: FDA-Public Use
  Company Number: None

PATIENT
  Age: 52 Year
  Sex: Female
  Weight: 54 kg

DRUGS (1)
  1. VITAMIN B12 [Suspect]
     Active Substance: CYANOCOBALAMIN
     Indication: VITAMIN B12 DEFICIENCY
     Dosage: ?          OTHER FREQUENCY:WEEKLY INJECTIONS;?
     Route: 030
     Dates: start: 20171002, end: 20180122

REACTIONS (3)
  - Dermatitis [None]
  - Reaction to excipient [None]
  - Injection related reaction [None]

NARRATIVE: CASE EVENT DATE: 20180427
